FAERS Safety Report 8488062-6 (Version None)
Quarter: 2012Q3

REPORT INFORMATION
  Report Type: 
  Country: None (occurrence: None)
  Receive Date: 20120705
  Receipt Date: 20120627
  Transmission Date: 20120928
  Serious: Yes (Other)
  Sender: FDA-Public Use
  Company Number: JP-BRISTOL-MYERS SQUIBB COMPANY-16673329

PATIENT
  Age: 33 Year
  Sex: Female

DRUGS (13)
  1. VOLTAREN [Suspect]
     Indication: RHEUMATOID ARTHRITIS
  2. CELECOXIB [Suspect]
     Indication: RHEUMATOID ARTHRITIS
  3. GASLON N [Concomitant]
     Indication: PROPHYLAXIS AGAINST GASTROINTESTINAL ULCER
  4. MAGMITT [Concomitant]
  5. METHOTREXATE [Suspect]
     Indication: RHEUMATOID ARTHRITIS
     Dosage: 6MG/WK:BEFOR ADM-19AUG2011 4MG ON 20AUG11 TO ONGOING
  6. AZUNOL [Concomitant]
  7. FOLIAMIN [Concomitant]
     Indication: PROPHYLAXIS
  8. FLAVINE ADENINE DINUCLEOTIDE [Concomitant]
  9. ZANTAC [Concomitant]
  10. ORENCIA [Suspect]
     Indication: RHEUMATOID ARTHRITIS
     Route: 041
     Dates: start: 20110415
  11. AMOXAPINE [Concomitant]
  12. LEXOTAN [Concomitant]
  13. PANTOSIN [Concomitant]

REACTIONS (2)
  - ABORTION INDUCED [None]
  - PREGNANCY [None]
